FAERS Safety Report 7400528-6 (Version None)
Quarter: 2011Q2

REPORT INFORMATION
  Report Type: 
  Country: None (occurrence: None)
  Receive Date: 20110407
  Receipt Date: 20110404
  Transmission Date: 20111010
  Serious: Yes (Other)
  Sender: FDA-Public Use
  Company Number: US-PFIZER INC-2011075107

PATIENT
  Sex: Female

DRUGS (1)
  1. CHANTIX [Suspect]
     Dosage: UNK

REACTIONS (6)
  - THINKING ABNORMAL [None]
  - STOMATITIS [None]
  - BARRETT'S OESOPHAGUS [None]
  - THROAT IRRITATION [None]
  - DYSPNOEA [None]
  - ABNORMAL DREAMS [None]
